FAERS Safety Report 9556239 (Version 1)
Quarter: 2013Q3

REPORT INFORMATION
  Report Type: Report from Study
  Country: BR (occurrence: BR)
  Receive Date: 20130926
  Receipt Date: 20130926
  Transmission Date: 20140515
  Serious: Yes (Other)
  Sender: FDA-Public Use
  Company Number: PHHY2013BR105341

PATIENT
  Age: 61 Year
  Sex: Male

DRUGS (2)
  1. INDACATEROL [Suspect]
     Dosage: 150 UG, QD
  2. TIOTROPIUM [Concomitant]
     Dosage: 5 UG, QD

REACTIONS (3)
  - Emphysema [Unknown]
  - Bronchial wall thickening [Unknown]
  - Obstructive airways disorder [Unknown]
